FAERS Safety Report 8906023 (Version 5)
Quarter: 2013Q1

REPORT INFORMATION
  Report Type: Spontaneous
  Country: US (occurrence: US)
  Receive Date: 20121112
  Receipt Date: 20130104
  Transmission Date: 20140127
  Serious: Yes (Other)
  Sender: FDA-Public Use
  Company Number: US-PFIZER INC-2012278587

PATIENT
  Age: 79 Year
  Sex: Male
  Weight: 77.1 kg

DRUGS (11)
  1. SUTENT [Suspect]
     Indication: METASTATIC RENAL CELL CARCINOMA
     Dosage: 50 MG, CYCLIC, ONCE DAILY X 28 DAYS FOLLOWED BY 2 WEEKS OFF (FOR THE FIRST 42 DAY CYCLE)
     Route: 048
     Dates: start: 20121030, end: 20121203
  2. SUTENT [Suspect]
     Dosage: 50 MG, CYCLIC
     Dates: start: 20121103, end: 20121203
  3. LISINOPRIL [Concomitant]
     Dosage: UNK
  4. SIMVASTATIN [Concomitant]
     Dosage: UNK
  5. COREG [Concomitant]
     Dosage: UNK
  6. HYTRIN [Concomitant]
     Dosage: UNK
  7. DUO NEBS [Concomitant]
     Dosage: UNK
  8. CLONIDINE [Concomitant]
     Dosage: DAILY AND PRN
  9. CARVEDILOL [Concomitant]
     Dosage: UNK
  10. TERAZOSIN [Concomitant]
     Dosage: UNK
  11. PORTABLE OXYGEN [Concomitant]
     Dosage: UNK

REACTIONS (13)
  - Hypertension [Recovered/Resolved with Sequelae]
  - Leukopenia [Recovering/Resolving]
  - Thrombocytopenia [Recovering/Resolving]
  - Blood creatinine abnormal [Unknown]
  - Dyspepsia [Recovered/Resolved]
  - Nausea [Unknown]
  - Dizziness [Unknown]
  - Yellow skin [Unknown]
  - Diarrhoea [Unknown]
  - Bronchitis [Recovered/Resolved]
  - Confusional state [Unknown]
  - Disease progression [Recovering/Resolving]
  - Metastatic renal cell carcinoma [Recovering/Resolving]
